FAERS Safety Report 11608800 (Version 4)
Quarter: 2015Q4

REPORT INFORMATION
  Report Type: Spontaneous
  Country: DZ (occurrence: DZ)
  Receive Date: 20151007
  Receipt Date: 20151209
  Transmission Date: 20160304
  Serious: Yes (Life-Threatening, Hospitalization, Disabling, Other)
  Sender: FDA-Public Use
  Company Number: DZ-PFIZER INC-2015331645

PATIENT
  Age: 32 Year
  Sex: Male

DRUGS (2)
  1. RIVOTRIL [Suspect]
     Active Substance: CLONAZEPAM
     Dosage: UNK
     Dates: start: 20150930
  2. LYRICA [Suspect]
     Active Substance: PREGABALIN
     Dosage: 300MG X 6
     Route: 048
     Dates: start: 20150930, end: 20150930

REACTIONS (5)
  - Skin disorder [Unknown]
  - Intentional overdose [Unknown]
  - Palmar-plantar erythrodysaesthesia syndrome [Unknown]
  - Suicide attempt [Recovering/Resolving]
  - Oedema peripheral [Unknown]

NARRATIVE: CASE EVENT DATE: 20150930
